FAERS Safety Report 4500381-4 (Version None)
Quarter: 2004Q4

REPORT INFORMATION
  Report Type: 
  Country: None (occurrence: None)
  Receive Date: 20041112
  Receipt Date: 20041104
  Transmission Date: 20050328
  Serious: Yes (Life-Threatening, Hospitalization)
  Sender: FDA-Public Use
  Company Number: US-MERCK-0411USA00827

PATIENT
  Age: 41 Year
  Sex: Male

DRUGS (1)
  1. VIOXX [Suspect]
     Indication: ARTHRITIS
     Route: 048
     Dates: start: 20030801, end: 20040228

REACTIONS (3)
  - FAECES DISCOLOURED [None]
  - LARGE INTESTINE PERFORATION [None]
  - MYOCARDIAL INFARCTION [None]
